FAERS Safety Report 7451001-0 (Version None)
Quarter: 2011Q2

REPORT INFORMATION
  Report Type: 
  Country: None (occurrence: None)
  Receive Date: 20110502
  Receipt Date: 20110426
  Transmission Date: 20111010
  Serious: Yes (Life-Threatening)
  Sender: FDA-Public Use
  Company Number: IT-ASTRAZENECA-2011SE23828

PATIENT
  Age: 58 Year
  Sex: Male

DRUGS (6)
  1. PLAVIX [Concomitant]
     Route: 048
  2. METOPROLOL SUCCINATE [Concomitant]
     Route: 048
  3. ASPIRIN [Concomitant]
     Route: 048
  4. CRESTOR [Suspect]
     Indication: HYPERCHOLESTEROLAEMIA
     Route: 048
     Dates: start: 20100910, end: 20110207
  5. RAMIPRIL [Concomitant]
  6. CYTOTEC [Concomitant]
     Route: 048

REACTIONS (2)
  - SUBACUTE HEPATIC FAILURE [None]
  - HEPATITIS CHOLESTATIC [None]
